FAERS Safety Report 11456890 (Version 1)
Quarter: 2015Q3

REPORT INFORMATION
  Report Type: Spontaneous
  Country: US (occurrence: US)
  Receive Date: 20150904
  Receipt Date: 20150904
  Transmission Date: 20151125
  Serious: Yes (Other)
  Sender: FDA-Public Use
  Company Number: US-AMGEN-USASP2015089042

PATIENT
  Age: 62 Year
  Sex: Male

DRUGS (2)
  1. AMICAR [Concomitant]
     Active Substance: AMINOCAPROIC ACID
     Indication: HAEMORRHAGE
  2. NPLATE [Suspect]
     Active Substance: ROMIPLOSTIM
     Indication: IMMUNE THROMBOCYTOPENIC PURPURA
     Dosage: 300 UNK, UNK
     Route: 065

REACTIONS (3)
  - Drug effect decreased [Unknown]
  - Platelet count decreased [Unknown]
  - Myelofibrosis [Not Recovered/Not Resolved]
